FAERS Safety Report 4393897-5 (Version None)
Quarter: 2004Q3

REPORT INFORMATION
  Report Type: 
  Country: None (occurrence: None)
  Receive Date: 20040702
  Receipt Date: 20040621
  Transmission Date: 20050211
  Serious: Yes (Death)
  Sender: FDA-Public Use
  Company Number: 2004-00104

PATIENT
  Age: 59 Year
  Sex: Male
  Weight: 80.7 kg

DRUGS (1)
  1. VELCADE [Suspect]
     Indication: MULTIPLE MYELOMA
     Dosage: 2.60 IV BOLUS

REACTIONS (3)
  - GASTROINTESTINAL HAEMORRHAGE [None]
  - PEPTIC ULCER [None]
  - PERFORATED ULCER [None]
